FAERS Safety Report 13675524 (Version 1)
Quarter: 2017Q2

REPORT INFORMATION
  Report Type: Spontaneous
  Country: FR (occurrence: FR)
  Receive Date: 20170621
  Receipt Date: 20170621
  Transmission Date: 20170830
  Serious: Yes (Hospitalization)
  Sender: FDA-Public Use
  Company Number: FR-PFIZER INC-2017263954

PATIENT
  Age: 15 Year
  Sex: Female

DRUGS (2)
  1. ZOLOFT [Suspect]
     Active Substance: SERTRALINE HYDROCHLORIDE
     Dosage: 250 MG OR 300 MG (50 MG X5 OR 6), SINGLE
     Route: 048
     Dates: start: 20170529, end: 20170529
  2. ZOLOFT [Suspect]
     Active Substance: SERTRALINE HYDROCHLORIDE
     Indication: DEPRESSION
     Dosage: UNK
     Route: 048
     Dates: start: 201703, end: 20170529

REACTIONS (7)
  - Vomiting [Recovered/Resolved]
  - Intentional overdose [Recovered/Resolved]
  - Pruritus [Recovered/Resolved]
  - Presyncope [Recovered/Resolved]
  - Somnolence [Recovered/Resolved]
  - Suicide attempt [Recovered/Resolved]
  - Sluggishness [Recovered/Resolved]

NARRATIVE: CASE EVENT DATE: 201705
